FAERS Safety Report 10489847 (Version 1)
Quarter: 2014Q4

REPORT INFORMATION
  Report Type: Spontaneous
  Country: AU (occurrence: AU)
  Receive Date: 20141002
  Receipt Date: 20141002
  Transmission Date: 20150528
  Serious: Yes (Hospitalization)
  Sender: FDA-Public Use
  Company Number: AU-GE HEALTHCARE MEDICAL DIAGNOSTICS-OMPQ-PR-1409S-1198

PATIENT
  Age: 72 Year
  Sex: Female

DRUGS (3)
  1. OMNIPAQUE [Suspect]
     Active Substance: IOHEXOL
     Indication: DIAGNOSTIC PROCEDURE
  2. OMNIPAQUE [Suspect]
     Active Substance: IOHEXOL
     Indication: OROPHARYNGEAL PAIN
     Route: 042
     Dates: start: 20140924, end: 20140924
  3. OMNIPAQUE [Suspect]
     Active Substance: IOHEXOL
     Indication: SENSATION OF FOREIGN BODY

REACTIONS (3)
  - Dyspnoea [Recovered/Resolved with Sequelae]
  - Sensation of foreign body [None]
  - Throat irritation [Recovered/Resolved with Sequelae]

NARRATIVE: CASE EVENT DATE: 20140924
